FAERS Safety Report 24765324 (Version 1)
Quarter: 2024Q4

REPORT INFORMATION
  Report Type: Spontaneous
  Country: US (occurrence: None)
  Receive Date: 20241219
  Receipt Date: 20241219
  Transmission Date: 20250114
  Serious: Yes (Life-Threatening, Hospitalization)
  Sender: Public
  Company Number: None

PATIENT
  Age: 71 Year
  Sex: Male
  Weight: 152 kg

DRUGS (1)
  1. RIVAROXABAN [Suspect]
     Active Substance: RIVAROXABAN
     Indication: Atrial fibrillation
     Dosage: OTHER FREQUENCY : PM;?
     Route: 048
     Dates: start: 20181115, end: 20240816

REACTIONS (2)
  - Gastrointestinal haemorrhage [None]
  - Fatigue [None]

NARRATIVE: CASE EVENT DATE: 20240809
